FAERS Safety Report 5579901-7 (Version None)
Quarter: 2008Q1

REPORT INFORMATION
  Report Type: 
  Country: None (occurrence: None)
  Receive Date: 20080103
  Receipt Date: 20071227
  Transmission Date: 20080703
  Serious: Yes (Death, Life-Threatening)
  Sender: FDA-Public Use
  Company Number: IT-JNJFOC-20071204669

PATIENT
  Sex: Male

DRUGS (10)
  1. REOPRO [Suspect]
     Indication: CORONARY ANGIOPLASTY
     Route: 042
  2. HUMALOG [Concomitant]
  3. CALCIPARINE [Concomitant]
     Indication: CORONARY ANGIOPLASTY
     Route: 042
  4. FUROSEMIDE [Concomitant]
  5. BENEXOL [Concomitant]
  6. BISOPROLOL [Concomitant]
  7. ATORVASTATIN [Concomitant]
  8. LEDERFOLIN [Concomitant]
  9. CLEXANE [Concomitant]
  10. MEDROL [Concomitant]

REACTIONS (4)
  - ACUTE MYOCARDIAL INFARCTION [None]
  - MECHANICAL VENTILATION [None]
  - RESPIRATORY TRACT HAEMORRHAGE [None]
  - THROMBOCYTOPENIA [None]
